FAERS Safety Report 24383239 (Version 1)
Quarter: 2024Q4

REPORT INFORMATION
  Report Type: Spontaneous
  Country: US (occurrence: US)
  Receive Date: 20241001
  Receipt Date: 20241001
  Transmission Date: 20250115
  Serious: No
  Sender: CATALYST PHARMA
  Company Number: US-CATALYST PHARMACEUTICALS-US-CATA-24-00581

PATIENT
  Sex: Male

DRUGS (1)
  1. AGAMREE [Suspect]
     Active Substance: VAMOROLONE
     Indication: Product used for unknown indication
     Dosage: UNKNOWN
     Route: 065

REACTIONS (1)
  - Cushingoid [Unknown]
